FAERS Safety Report 11641522 (Version 3)
Quarter: 2015Q4

REPORT INFORMATION
  Report Type: Report from Study
  Country: US (occurrence: US)
  Receive Date: 20151019
  Receipt Date: 20151229
  Transmission Date: 20160304
  Serious: Yes (Hospitalization)
  Sender: FDA-Public Use
  Company Number: US-CELGENE-USA-2015102064

PATIENT
  Age: 69 Year
  Sex: Female
  Weight: 120.7 kg

DRUGS (6)
  1. REVLIMID [Suspect]
     Active Substance: LENALIDOMIDE
     Indication: HUMAN T-CELL LYMPHOTROPIC VIRUS TYPE I INFECTION
     Route: 048
     Dates: start: 20140813
  2. REVLIMID [Suspect]
     Active Substance: LENALIDOMIDE
  3. REVLIMID [Suspect]
     Active Substance: LENALIDOMIDE
     Route: 048
     Dates: start: 20150916
  4. ROMIDEPSIN [Suspect]
     Active Substance: ROMIDEPSIN
  5. ISTODAX [Suspect]
     Active Substance: ROMIDEPSIN
     Indication: HUMAN T-CELL LYMPHOTROPIC VIRUS TYPE I INFECTION
     Route: 065
     Dates: start: 20140813
  6. ISTODAX [Suspect]
     Active Substance: ROMIDEPSIN
     Route: 065
     Dates: start: 20150916

REACTIONS (2)
  - Blood creatine phosphokinase increased [Not Recovered/Not Resolved]
  - Fall [Not Recovered/Not Resolved]

NARRATIVE: CASE EVENT DATE: 20151007
